FAERS Safety Report 9710750 (Version 1)
Quarter: 2013Q4

REPORT INFORMATION
  Report Type: Spontaneous
  Country: US (occurrence: US)
  Receive Date: 20131126
  Receipt Date: 20131126
  Transmission Date: 20140711
  Serious: No
  Sender: FDA-Public Use
  Company Number: US-BRISTOL-MYERS SQUIBB COMPANY-18976696

PATIENT
  Age: 81 Year
  Sex: Male
  Weight: 112.01 kg

DRUGS (5)
  1. BYETTA [Suspect]
     Indication: TYPE 2 DIABETES MELLITUS
     Route: 058
     Dates: start: 20130313
  2. CRESTOR [Concomitant]
  3. NEXIUM [Concomitant]
  4. SOTALOL [Concomitant]
  5. LISINOPRIL [Concomitant]

REACTIONS (1)
  - Constipation [Not Recovered/Not Resolved]
